FAERS Safety Report 23218031 (Version 1)
Quarter: 2023Q4

REPORT INFORMATION
  Report Type: Spontaneous
  Country: GB (occurrence: GB)
  Receive Date: 20231122
  Receipt Date: 20231122
  Transmission Date: 20240109
  Serious: Yes (Other)
  Sender: FDA-Public Use
  Company Number: GB-FreseniusKabi-FK202318764

PATIENT
  Age: 41 Year
  Sex: Female

DRUGS (6)
  1. PACLITAXEL [Suspect]
     Active Substance: PACLITAXEL
     Indication: Gestational trophoblastic tumour
     Dosage: THEREFORE COMMENCED SECOND LINE TP/TE.?TP/TE: TP: PACLITAXEL 135 MG/M2  DAY 1 .
  2. PACLITAXEL [Suspect]
     Active Substance: PACLITAXEL
     Indication: Metastases to meninges
  3. CISPLATIN [Suspect]
     Active Substance: CISPLATIN
     Indication: Gestational trophoblastic tumour
     Dosage: THEREFORE COMMENCED SECOND LINE TP/TE.?TP/TE: TP: PACLITAXEL 135 MG/M2 AND CISPLATIN 75 MG/M2 DAY 1,
  4. CISPLATIN [Suspect]
     Active Substance: CISPLATIN
     Indication: Metastases to meninges
  5. ETOPOSIDE [Suspect]
     Active Substance: ETOPOSIDE
     Indication: Gestational trophoblastic tumour
     Dosage: THEREFORE COMMENCED SECOND LINE TP/TE.?TP/TE: TE: PACLITAXEL 135 MG/M2 AND ETOPOSIDE 150 MG/M2 DAY 1
  6. ETOPOSIDE [Suspect]
     Active Substance: ETOPOSIDE
     Indication: Metastases to meninges

REACTIONS (1)
  - Anaphylactic reaction [Recovering/Resolving]
